FAERS Safety Report 9371162 (Version 2)
Quarter: 2013Q3

REPORT INFORMATION
  Report Type: Spontaneous
  Country: BR (occurrence: BR)
  Receive Date: 20130627
  Receipt Date: 20130729
  Transmission Date: 20140515
  Serious: Yes (Other)
  Sender: FDA-Public Use
  Company Number: BR-AMGEN-BRASP2013045011

PATIENT
  Age: 76 Year
  Sex: Female
  Weight: 55 kg

DRUGS (3)
  1. PROLIA [Suspect]
     Indication: OSTEOPOROSIS
     Dosage: 1APP SEE DOSAGE TEXT
     Route: 065
     Dates: start: 20130117, end: 20130117
  2. ATACAND [Concomitant]
  3. CALCIUM [Concomitant]

REACTIONS (2)
  - Pulmonary thrombosis [Recovered/Resolved]
  - Extrasystoles [Recovering/Resolving]
